FAERS Safety Report 12946024 (Version 2)
Quarter: 2016Q4

REPORT INFORMATION
  Report Type: Spontaneous
  Country: US (occurrence: US)
  Receive Date: 20161116
  Receipt Date: 20161123
  Transmission Date: 20170207
  Serious: Yes (Hospitalization)
  Sender: FDA-Public Use
  Company Number: US-ASTRAZENECA-2016SF18041

PATIENT
  Age: 29154 Day
  Sex: Female
  Weight: 86.2 kg

DRUGS (8)
  1. BENAZEPRIL [Concomitant]
     Active Substance: BENAZEPRIL HYDROCHLORIDE
     Indication: HYPERTENSION
  2. IBUPROFEN. [Concomitant]
     Active Substance: IBUPROFEN
     Indication: ARTHRITIS
     Dosage: 800.0MG AS REQUIRED
  3. BYDUREON [Suspect]
     Active Substance: EXENATIDE
     Indication: TYPE 2 DIABETES MELLITUS
     Dosage: 2 MG, EVERY 7-10 DAYS
     Route: 058
  4. GLYBIZIDE [Concomitant]
     Indication: DIABETES MELLITUS
     Dosage: ONE IN MORNING, ONE AT LUNCH, TWO AT DINNER
  5. INVOKANA [Concomitant]
     Active Substance: CANAGLIFLOZIN
  6. ANTIBIOTICS [Concomitant]
     Active Substance: UNSPECIFIED INGREDIENT
     Indication: FUNGAL INFECTION
  7. ACARBOSE. [Concomitant]
     Active Substance: ACARBOSE
     Indication: DIABETES MELLITUS
  8. BABY ASPIRIN [Concomitant]
     Active Substance: ASPIRIN

REACTIONS (5)
  - Myocardial infarction [Unknown]
  - Intentional product misuse [Unknown]
  - Body height decreased [Unknown]
  - Weight increased [Unknown]
  - Device leakage [Unknown]

NARRATIVE: CASE EVENT DATE: 20160907
